FAERS Safety Report 9076382 (Version 1)
Quarter: 2013Q1

REPORT INFORMATION
  Report Type: Report from Study
  Country: US (occurrence: US)
  Receive Date: 20130129
  Receipt Date: 20130129
  Transmission Date: 20140127
  Serious: No
  Sender: FDA-Public Use
  Company Number: US-ABBOTT-12P-163-0946932-00

PATIENT
  Age: 28 Year
  Sex: Female

DRUGS (5)
  1. HUMIRA 40 MG/0.8 ML PEN [Suspect]
     Indication: CROHN^S DISEASE
     Dates: start: 20120530, end: 20120530
  2. HUMIRA 40 MG/0.8 ML PEN [Suspect]
     Dates: start: 20120613, end: 20120613
  3. HUMIRA 40 MG/0.8 ML PEN [Suspect]
  4. UNKNOWN MEDICATION [Concomitant]
     Indication: THYROID DISORDER
  5. UNKNOWN MEDICATION [Concomitant]
     Indication: CONTRACEPTION

REACTIONS (3)
  - Injection site bruising [Recovered/Resolved]
  - Injection site swelling [Recovered/Resolved]
  - Injection site haemorrhage [Recovering/Resolving]
